FAERS Safety Report 6827229-7 (Version None)
Quarter: 2010Q3

REPORT INFORMATION
  Report Type: 
  Country: None (occurrence: None)
  Receive Date: 20100709
  Receipt Date: 20100630
  Transmission Date: 20110219
  Serious: Yes (Death, Other)
  Sender: FDA-Public Use
  Company Number: NL-ABBOTT-10P-114-0643049-00

PATIENT
  Sex: Male

DRUGS (6)
  1. HUMIRA [Suspect]
     Indication: RHEUMATOID ARTHRITIS
     Route: 058
     Dates: start: 20050615, end: 20070402
  2. ENBREL [Suspect]
     Indication: RHEUMATOID ARTHRITIS
     Route: 058
     Dates: start: 20070403
  3. MABTHERA/FLACON [Concomitant]
     Indication: PRODUCT USED FOR UNKNOWN INDICATION
     Dosage: 10MG/ML (10 ML) DAILY
     Route: 042
     Dates: start: 20070817, end: 20070817
  4. MABTHERA/FLACON [Concomitant]
     Route: 042
     Dates: start: 20080201, end: 20080201
  5. MABTHERA/FLACON [Concomitant]
     Route: 042
     Dates: start: 20081010, end: 20081010
  6. MABTHERA/FLACON [Concomitant]
     Route: 042
     Dates: start: 20090907, end: 20090907

REACTIONS (3)
  - HEADACHE [None]
  - LUNG NEOPLASM MALIGNANT [None]
  - METASTASES TO CENTRAL NERVOUS SYSTEM [None]
